FAERS Safety Report 7924425-2 (Version None)
Quarter: 2011Q4

REPORT INFORMATION
  Report Type: 
  Country: None (occurrence: None)
  Receive Date: 20111117
  Receipt Date: 20110322
  Transmission Date: 20120403
  Serious: No
  Sender: FDA-Public Use
  Company Number: US-AMGEN-USASP2011011609

PATIENT
  Age: 57 Year
  Sex: Male
  Weight: 128.35 kg

DRUGS (1)
  1. ENBREL [Suspect]
     Indication: PSORIATIC ARTHROPATHY
     Dosage: 50 MG, QWK
     Dates: start: 20070101

REACTIONS (8)
  - ACCIDENT [None]
  - ABNORMAL FAECES [None]
  - DYSGEUSIA [None]
  - BURNS FIRST DEGREE [None]
  - INJECTION SITE ERYTHEMA [None]
  - ABDOMINAL DISCOMFORT [None]
  - BURNS SECOND DEGREE [None]
  - INJECTION SITE PRURITUS [None]
